FAERS Safety Report 17003529 (Version 1)
Quarter: 2019Q4

REPORT INFORMATION
  Report Type: Spontaneous
  Country: US (occurrence: US)
  Receive Date: 20191107
  Receipt Date: 20191107
  Transmission Date: 20200122
  Serious: No
  Sender: FDA-Public Use
  Company Number: US-GLAXOSMITHKLINE-US2019195422

PATIENT
  Sex: Female

DRUGS (1)
  1. BUPROPION HYDROCHLORIDE PROLONGED-RELEASE TABLET [Suspect]
     Active Substance: BUPROPION HYDROCHLORIDE
     Indication: OBSESSIVE-COMPULSIVE DISORDER
     Dosage: 150 MG, BID
     Route: 048
     Dates: start: 2013

REACTIONS (7)
  - Paranoia [Unknown]
  - Post-traumatic stress disorder [Unknown]
  - Obsessive-compulsive disorder [Unknown]
  - Depression [Unknown]
  - Insomnia [Unknown]
  - Drug ineffective [Unknown]
  - Condition aggravated [Unknown]
